FAERS Safety Report 6655397-9 (Version None)
Quarter: 2010Q1

REPORT INFORMATION
  Report Type: 
  Country: None (occurrence: None)
  Receive Date: 20100326
  Receipt Date: 20100326
  Transmission Date: 20100710
  Serious: No
  Sender: FDA-Public Use
  Company Number: None

PATIENT
  Age: 88 Year
  Sex: Female
  Weight: 43.0917 kg

DRUGS (2)
  1. DILTIAZEM [Suspect]
     Indication: ATRIAL FLUTTER
     Dosage: 120 MG DAILY PO
     Route: 048
     Dates: start: 20100321, end: 20100325
  2. DILTIAZEM [Suspect]
     Indication: HEART RATE INCREASED
     Dosage: 120 MG DAILY PO
     Route: 048
     Dates: start: 20100321, end: 20100325

REACTIONS (3)
  - CIRCUMSTANCE OR INFORMATION CAPABLE OF LEADING TO MEDICATION ERROR [None]
  - DRUG DISPENSING ERROR [None]
  - MEDICATION ERROR [None]
